FAERS Safety Report 6635322-7 (Version None)
Quarter: 2010Q1

REPORT INFORMATION
  Report Type: 
  Country: None (occurrence: None)
  Receive Date: 20100315
  Receipt Date: 20100305
  Transmission Date: 20100710
  Serious: Yes (Other)
  Sender: FDA-Public Use
  Company Number: CA-GENENTECH-297899

PATIENT
  Sex: Male

DRUGS (6)
  1. RITUXIMAB [Suspect]
     Indication: CHRONIC LYMPHOCYTIC LEUKAEMIA
     Dosage: 750 MG, Q28D
     Route: 042
     Dates: start: 20090601, end: 20091130
  2. STEMETIL [Suspect]
     Indication: PROPHYLAXIS
     Route: 065
  3. DEXAMETHASONE [Suspect]
     Indication: PROPHYLAXIS
     Route: 065
  4. TEGRETOL [Concomitant]
     Indication: EPILEPSY
     Dosage: UNK
  5. DIVALPROEX SODIUM [Concomitant]
     Indication: DRUG USE FOR UNKNOWN INDICATION
     Dosage: UNK
  6. CLOBAZAM [Concomitant]
     Indication: DRUG USE FOR UNKNOWN INDICATION
     Dosage: UNK

REACTIONS (1)
  - CONVULSION [None]
